FAERS Safety Report 23063141 (Version 1)
Quarter: 2023Q4

REPORT INFORMATION
  Report Type: Spontaneous
  Country: HR (occurrence: HR)
  Receive Date: 20231013
  Receipt Date: 20231013
  Transmission Date: 20240109
  Serious: Yes (Other)
  Sender: FDA-Public Use
  Company Number: None

PATIENT
  Age: 41 Year
  Sex: Female

DRUGS (1)
  1. COPAXONE [Suspect]
     Active Substance: GLATIRAMER ACETATE
     Indication: Relapsing-remitting multiple sclerosis
     Dosage: DRUG STRENGTH: 40 DOSAGE: 3 TIMES A WEEK
     Route: 065
     Dates: start: 2013, end: 20221210

REACTIONS (1)
  - Leukodystrophy [Recovering/Resolving]

NARRATIVE: CASE EVENT DATE: 20221201
